FAERS Safety Report 5650488-3 (Version None)
Quarter: 2008Q1

REPORT INFORMATION
  Report Type: 
  Country: None (occurrence: None)
  Receive Date: 20080305
  Receipt Date: 20080229
  Transmission Date: 20080703
  Serious: Yes (Life-Threatening, Other)
  Sender: FDA-Public Use
  Company Number: DE-NOVOPROD-272789

PATIENT
  Weight: 0.5 kg

DRUGS (1)
  1. NOVOSEVEN [Suspect]
     Indication: HAEMORRHAGE
     Dosage: 1.2 MG, QD
     Route: 042
     Dates: start: 20080229, end: 20080229

REACTIONS (3)
  - ANURIA [None]
  - CYANOSIS [None]
  - OVERDOSE [None]
